FAERS Safety Report 13022193 (Version 1)
Quarter: 2016Q4

REPORT INFORMATION
  Report Type: Spontaneous
  Country: US (occurrence: US)
  Receive Date: 20161213
  Receipt Date: 20161213
  Transmission Date: 20170207
  Serious: No
  Sender: FDA-Public Use
  Company Number: US-PFIZER INC-2016563590

PATIENT
  Age: 22 Year
  Sex: Male

DRUGS (4)
  1. PREDNISONE. [Suspect]
     Active Substance: PREDNISONE
     Indication: PYREXIA
     Dosage: 10 MG, 1X/DAY
     Route: 048
     Dates: start: 20161119, end: 20161119
  2. PREDNISONE. [Suspect]
     Active Substance: PREDNISONE
     Dosage: 10 MG, 1X/DAY
     Route: 048
     Dates: start: 20161120, end: 20161120
  3. MEROPENEM. [Suspect]
     Active Substance: MEROPENEM
     Dosage: 500 MG,  Q6HR
     Route: 051
     Dates: start: 20161113, end: 20161128
  4. PREDNISONE. [Suspect]
     Active Substance: PREDNISONE
     Dosage: 10 MG, 1X/DAY
     Route: 048
     Dates: start: 20161124, end: 20161124

REACTIONS (2)
  - Drug ineffective [Unknown]
  - Pyrexia [Unknown]

NARRATIVE: CASE EVENT DATE: 20161117
